APPROVED DRUG PRODUCT: MAGNEVIST
Active Ingredient: GADOPENTETATE DIMEGLUMINE
Strength: 469.01MG/ML
Dosage Form/Route: INJECTABLE;INJECTION
Application: N021037 | Product #001
Applicant: BAYER HEALTHCARE PHARMACEUTICALS INC
Approved: Mar 10, 2000 | RLD: Yes | RS: No | Type: DISCN